FAERS Safety Report 20815243 (Version 1)
Quarter: 2022Q2

REPORT INFORMATION
  Report Type: Spontaneous
  Country: DK (occurrence: DK)
  Receive Date: 20220511
  Receipt Date: 20220511
  Transmission Date: 20220720
  Serious: Yes (Other)
  Sender: FDA-Public Use
  Company Number: None

PATIENT
  Age: 77 Year
  Sex: Male

DRUGS (9)
  1. OXYCONTIN [Suspect]
     Active Substance: OXYCODONE HYDROCHLORIDE
     Indication: Pain
     Dosage: 10 MILLIGRAM, DAILY, (STRENGTH: 5 MG)
     Route: 048
     Dates: start: 20220123, end: 20220124
  2. OXYCODONE HYDROCHLORIDE [Suspect]
     Active Substance: OXYCODONE HYDROCHLORIDE
     Indication: Pain
     Dosage: DOSAGE: 5 MG PN. (STRENGTH: 5 MG)
     Route: 048
     Dates: start: 20220123, end: 202201
  3. OXYCODONE HYDROCHLORIDE [Suspect]
     Active Substance: OXYCODONE HYDROCHLORIDE
     Dosage: 20 MILLIGRAM, DAILY (STRENGTH:5 MG)
     Route: 048
     Dates: start: 20220122, end: 20220123
  4. OXYCODONE HYDROCHLORIDE [Suspect]
     Active Substance: OXYCODONE HYDROCHLORIDE
     Dosage: DOSAGE: 5 MG PN. MAX X6. (STRENGTH: 5 MG)
     Route: 042
     Dates: start: 20220122, end: 202201
  5. MORPHINE SULFATE [Concomitant]
     Active Substance: MORPHINE SULFATE
     Indication: Pain
     Dosage: UNK
     Route: 065
     Dates: start: 20220122
  6. ACETAMINOPHEN [Concomitant]
     Active Substance: ACETAMINOPHEN
     Indication: Pain
     Dosage: 4 GRAM, DAILY
     Route: 048
     Dates: start: 20220122
  7. IBUPROFEN [Concomitant]
     Active Substance: IBUPROFEN
     Indication: Pain
     Dosage: 1600 MILLIGRAM, DAILY
     Route: 048
     Dates: start: 20220122
  8. BUPIVACAINE [Concomitant]
     Active Substance: BUPIVACAINE
     Indication: Pain
     Dosage: UNK
     Route: 065
     Dates: start: 20220123
  9. HALOPERIDOL [Concomitant]
     Active Substance: HALOPERIDOL
     Indication: Pain
     Dosage: DOSAGE: 2 MG PN
     Route: 042
     Dates: start: 202201

REACTIONS (5)
  - Psychomotor hyperactivity [Unknown]
  - Delirium [Recovered/Resolved]
  - Aggression [Recovered/Resolved]
  - Nausea [Unknown]
  - Confusional state [Recovered/Resolved]

NARRATIVE: CASE EVENT DATE: 20220123
